FAERS Safety Report 11787318 (Version 2)
Quarter: 2015Q4

REPORT INFORMATION
  Report Type: Report from Study
  Country: US (occurrence: US)
  Receive Date: 20151130
  Receipt Date: 20151217
  Transmission Date: 20160305
  Serious: Yes (Death, Other)
  Sender: FDA-Public Use
  Company Number: US-JAZZ-2015-US-020425

PATIENT
  Age: 57 Year
  Sex: Male

DRUGS (10)
  1. CLOZAPINE ODT [Suspect]
     Active Substance: CLOZAPINE
  2. FOLIC ACID. [Concomitant]
     Active Substance: FOLIC ACID
     Dosage: 1 MG, BID
     Route: 048
  3. DEPAKOTE [Concomitant]
     Active Substance: DIVALPROEX SODIUM
     Dosage: 500 MG, BID
     Route: 048
  4. MIRALAX [Concomitant]
     Active Substance: POLYETHYLENE GLYCOL 3350
     Dosage: 17 G, QD
     Route: 048
  5. MVI [Concomitant]
     Active Substance: VITAMINS
     Dosage: UNK
  6. SENNA ALEXANDRIA EXTRACT W/DOCUSATE SODIUM [Concomitant]
     Dosage: 1 TABLET DAILY
     Route: 048
  7. RISPERDAL [Concomitant]
     Active Substance: RISPERIDONE
     Dosage: 1 MG EVERY MORNING 2MG EVERY EVENING
     Route: 048
  8. CLOZAPINE. [Suspect]
     Active Substance: CLOZAPINE
  9. LEVOTHYROXINE SODIUM. [Concomitant]
     Active Substance: LEVOTHYROXINE SODIUM
     Dosage: 50 MG, QD
     Route: 048
  10. MEGACE [Concomitant]
     Active Substance: MEGESTROL ACETATE
     Dosage: 625 MG, QD
     Route: 048

REACTIONS (2)
  - Death [Fatal]
  - Lung neoplasm malignant [Unknown]

NARRATIVE: CASE EVENT DATE: 201310
